FAERS Safety Report 8235194-3 (Version None)
Quarter: 2012Q1

REPORT INFORMATION
  Report Type: 
  Country: None (occurrence: None)
  Receive Date: 20120326
  Receipt Date: 20120322
  Transmission Date: 20120608
  Serious: Yes (Death)
  Sender: FDA-Public Use
  Company Number: US-JNJFOC-20120311926

PATIENT
  Sex: Female

DRUGS (1)
  1. REOPRO [Suspect]
     Indication: SURGERY
     Route: 042
     Dates: start: 20111121, end: 20111121

REACTIONS (1)
  - DEATH [None]
